FAERS Safety Report 9806398 (Version 2)
Quarter: 2014Q2

REPORT INFORMATION
  Report Type: Spontaneous
  Country: US (occurrence: US)
  Receive Date: 20140109
  Receipt Date: 20140414
  Transmission Date: 20141212
  Serious: No
  Sender: FDA-Public Use
  Company Number: US-009507513-1401USA003411

PATIENT
  Age: 50 Year
  Sex: Female
  Weight: 90.7 kg

DRUGS (3)
  1. OXYTROL FOR WOMEN [Suspect]
     Indication: CYSTITIS INTERSTITIAL
     Dosage: UNK, UNKNOWN
     Route: 062
     Dates: start: 20140115, end: 20140123
  2. ELMIRON [Concomitant]
     Indication: CYSTITIS INTERSTITIAL
     Dosage: UNK, UNKNOWN
  3. SINGULAIR [Concomitant]
     Indication: ASTHMA
     Dosage: UNK, UNKNOWN

REACTIONS (5)
  - Rash [Not Recovered/Not Resolved]
  - Pruritus [Not Recovered/Not Resolved]
  - Erythema [Not Recovered/Not Resolved]
  - Off label use [Unknown]
  - Drug ineffective [Unknown]
